FAERS Safety Report 22284311 (Version 1)
Quarter: 2023Q2

REPORT INFORMATION
  Report Type: Spontaneous
  Country: US (occurrence: None)
  Receive Date: 20230503
  Receipt Date: 20230503
  Transmission Date: 20230721
  Serious: No
  Sender: FDA-Public Use
  Company Number: None

PATIENT
  Age: 63 Year
  Sex: 0

DRUGS (1)
  1. NIRMATRELVIR\RITONAVIR [Suspect]
     Active Substance: NIRMATRELVIR\RITONAVIR
     Dosage: 150 MG ORAL
     Route: 048

REACTIONS (3)
  - Product dispensing error [None]
  - Incorrect product dosage form administered [None]
  - Product dispensing error [None]

NARRATIVE: CASE EVENT DATE: 20230219
